FAERS Safety Report 5291891-3 (Version None)
Quarter: 2007Q2

REPORT INFORMATION
  Report Type: 
  Country: None (occurrence: None)
  Receive Date: 20070403
  Receipt Date: 20070326
  Transmission Date: 20071010
  Serious: Yes (Hospitalization)
  Sender: FDA-Public Use
  Company Number: 238899

PATIENT
  Age: 59 Year
  Sex: Female

DRUGS (6)
  1. LUCENTIS [Suspect]
     Dates: start: 20070101
  2. ANTIDEPRESSANT NOS (ANTIDEPRESSANT NOS) [Concomitant]
  3. ASPIRIN [Concomitant]
  4. NEXIUM [Concomitant]
  5. PREDNISONE TAB [Concomitant]
  6. CELLCEPT [Concomitant]

REACTIONS (1)
  - CEREBROVASCULAR ACCIDENT [None]
